FAERS Safety Report 7381820-0 (Version None)
Quarter: 2011Q1

REPORT INFORMATION
  Report Type: 
  Country: None (occurrence: None)
  Receive Date: 20110329
  Receipt Date: 20110316
  Transmission Date: 20110831
  Serious: Yes (Other)
  Sender: FDA-Public Use
  Company Number: PHHY2011SE07074

PATIENT
  Sex: Female

DRUGS (1)
  1. BISOPROLOL SANDOZ [Suspect]
     Route: 048
     Dates: end: 20101013

REACTIONS (1)
  - BLINDNESS [None]
